FAERS Safety Report 7726769-6 (Version None)
Quarter: 2011Q3

REPORT INFORMATION
  Report Type: 
  Country: None (occurrence: None)
  Receive Date: 20110902
  Receipt Date: 20110822
  Transmission Date: 20111222
  Serious: Yes (Hospitalization)
  Sender: FDA-Public Use
  Company Number: US-GLAXOSMITHKLINE-A0891004A

PATIENT
  Age: 58 Year
  Sex: Male

DRUGS (6)
  1. AVANDIA [Suspect]
     Indication: DIABETES MELLITUS
     Dosage: 4MG TWICE PER DAY
     Route: 048
     Dates: start: 19990101, end: 20050101
  2. NEURONTIN [Concomitant]
  3. ZOCOR [Concomitant]
  4. WELLBUTRIN [Concomitant]
  5. AMARYL [Concomitant]
  6. LISINOPRIL [Concomitant]

REACTIONS (2)
  - MYOCARDIAL ISCHAEMIA [None]
  - CORONARY ARTERY DISEASE [None]
